FAERS Safety Report 10065003 (Version 1)
Quarter: 2014Q2

REPORT INFORMATION
  Report Type: Spontaneous
  Country: US (occurrence: US)
  Receive Date: 20140408
  Receipt Date: 20140408
  Transmission Date: 20141212
  Serious: No
  Sender: FDA-Public Use
  Company Number: US-TEVA-470026USA

PATIENT
  Sex: Female
  Weight: 79.45 kg

DRUGS (3)
  1. QNASL [Suspect]
     Indication: HYPERSENSITIVITY
     Route: 055
     Dates: start: 20140315
  2. MUCINEX [Concomitant]
     Indication: SECRETION DISCHARGE
  3. ALLERGY PILLS [Concomitant]
     Indication: HYPERSENSITIVITY

REACTIONS (4)
  - Secretion discharge [Not Recovered/Not Resolved]
  - Rhinorrhoea [Not Recovered/Not Resolved]
  - Rhinorrhoea [Not Recovered/Not Resolved]
  - Productive cough [Not Recovered/Not Resolved]
